FAERS Safety Report 17307433 (Version 1)
Quarter: 2020Q1

REPORT INFORMATION
  Report Type: Report from Study
  Country: FR (occurrence: FR)
  Receive Date: 20200123
  Receipt Date: 20200123
  Transmission Date: 20200409
  Serious: Yes (Hospitalization, Other)
  Sender: FDA-Public Use
  Company Number: FR-MYLANLABS-2020M1006663

PATIENT
  Age: 7 Year
  Sex: Male
  Weight: 31 kg

DRUGS (18)
  1. URBANYL [Concomitant]
     Active Substance: CLOBAZAM
     Dosage: 5 MILLIGRAM, QD
     Route: 048
     Dates: start: 201504, end: 20171126
  2. EPITOMAX [Concomitant]
     Active Substance: TOPIRAMATE
     Indication: EPILEPSY
     Dosage: 30 MILLIGRAM, QD (15 MG, BID)
     Route: 048
     Dates: start: 20111017
  3. URBANYL [Concomitant]
     Active Substance: CLOBAZAM
     Dosage: 7.5 MILLIGRAM, QD
     Route: 048
     Dates: start: 20180518
  4. TRILEPTAL [Concomitant]
     Active Substance: OXCARBAZEPINE
     Dosage: 600 MILLIGRAM, QD
     Route: 048
     Dates: start: 20171007
  5. TRILEPTAL [Concomitant]
     Active Substance: OXCARBAZEPINE
     Dosage: 600 MILLIGRAM, QD (300 MG, BID)
     Route: 048
     Dates: start: 20180426
  6. TRILEPTAL [Concomitant]
     Active Substance: OXCARBAZEPINE
     Dosage: 780 MILLIGRAM (780 MG, 3DD)
     Route: 048
     Dates: start: 20120620
  7. EVEROLIMUS. [Suspect]
     Active Substance: EVEROLIMUS
     Dosage: 2.5 MILLIGRAM, QD
     Route: 048
     Dates: start: 20160616
  8. URBANYL [Concomitant]
     Active Substance: CLOBAZAM
     Indication: EPILEPSY
     Dosage: 5 MILLIGRAM, QD
     Route: 048
     Dates: start: 2011
  9. URBANYL [Concomitant]
     Active Substance: CLOBAZAM
     Dosage: 10 MILLIGRAM, QD (5 MG, BID)
     Route: 048
     Dates: start: 20171127
  10. TRILEPTAL [Concomitant]
     Active Substance: OXCARBAZEPINE
     Dosage: 450 MILLIGRAM, QD
     Route: 048
     Dates: start: 20180517
  11. EVEROLIMUS. [Suspect]
     Active Substance: EVEROLIMUS
     Indication: TUBEROUS SCLEROSIS COMPLEX
     Dosage: 5 MILLIGRAM, QD
     Route: 048
     Dates: start: 20130606, end: 20151016
  12. VIMPAT [Concomitant]
     Active Substance: LACOSAMIDE
     Indication: EPILEPSY
     Dosage: 200 MILLIGRAM, QD (100 MG, BID)
     Route: 048
     Dates: start: 20150304
  13. KEPPRA [Concomitant]
     Active Substance: LEVETIRACETAM
     Indication: EPILEPSY
     Dosage: UNK
     Route: 065
     Dates: start: 20151014
  14. VIMPAT [Concomitant]
     Active Substance: LACOSAMIDE
     Dosage: 150 MILLIGRAM, QD (100 MG AND 50 MG)
     Route: 048
     Dates: start: 20161129
  15. URBANYL [Concomitant]
     Active Substance: CLOBAZAM
     Dosage: 15 MILLIGRAM, QD (7.5 MG, (2.5+5) BID)
     Route: 048
     Dates: start: 20180110
  16. TRILEPTAL [Concomitant]
     Active Substance: OXCARBAZEPINE
     Indication: EPILEPSY
     Dosage: 900 MILLIGRAM, QD (450 MG, BID)
     Route: 065
  17. TRILEPTAL [Concomitant]
     Active Substance: OXCARBAZEPINE
     Dosage: 600 MILLIGRAM, QD (300 MG, BID)
     Route: 048
     Dates: start: 20180327
  18. TRILEPTAL [Concomitant]
     Active Substance: OXCARBAZEPINE
     Dosage: 900 MILLIGRAM, QD (300 MG AND 600 MG)
     Route: 048
     Dates: start: 20171007, end: 20171129

REACTIONS (25)
  - Ear infection [Not Recovered/Not Resolved]
  - Hyperkeratosis [Recovered/Resolved]
  - Oropharyngeal pain [Recovered/Resolved]
  - Pharyngitis [Not Recovered/Not Resolved]
  - Insomnia [Not Recovered/Not Resolved]
  - Arthralgia [Not Recovered/Not Resolved]
  - Drug ineffective [Not Recovered/Not Resolved]
  - Anaemia [Recovered/Resolved]
  - Weight decreased [Recovered/Resolved]
  - Decreased appetite [Recovered/Resolved]
  - Gingivitis [Recovered/Resolved]
  - Asthenia [Not Recovered/Not Resolved]
  - Abdominal pain [Recovered/Resolved]
  - Oral pain [Recovered/Resolved]
  - Pruritus [Recovered/Resolved]
  - Constipation [Recovered/Resolved]
  - Epilepsy [Recovered/Resolved]
  - Ataxia [Not Recovered/Not Resolved]
  - Vomiting [Recovered/Resolved]
  - Partial seizures [Recovered/Resolved]
  - Iron deficiency [Recovered/Resolved]
  - Ankle fracture [Recovered/Resolved]
  - Rhinitis [Recovering/Resolving]
  - Bronchitis [Not Recovered/Not Resolved]
  - Dry skin [Not Recovered/Not Resolved]

NARRATIVE: CASE EVENT DATE: 20140409
